FAERS Safety Report 10697254 (Version 1)
Quarter: 2015Q1

REPORT INFORMATION
  Report Type: Spontaneous
  Country: US (occurrence: None)
  Receive Date: 20150107
  Receipt Date: 20150107
  Transmission Date: 20150721
  Serious: Yes (Other)
  Sender: FDA-Public Use
  Company Number: None

PATIENT
  Age: 67 Year
  Sex: Male
  Weight: 71.22 kg

DRUGS (19)
  1. VITAMIN D [Concomitant]
     Active Substance: CHOLECALCIFEROL
  2. ZOFRAN [Concomitant]
     Active Substance: ONDANSETRON HYDROCHLORIDE
  3. PRILOSEC [Concomitant]
     Active Substance: OMEPRAZOLE MAGNESIUM
  4. VICODEN [Concomitant]
  5. CLONIDINE. [Concomitant]
     Active Substance: CLONIDINE
  6. FISH OIL [Concomitant]
     Active Substance: FISH OIL
  7. STOOL SOFTENER [Concomitant]
     Active Substance: DOCUSATE CALCIUM
  8. DULCOLAX [Concomitant]
     Active Substance: BISACODYL OR DOCUSATE SODIUM
  9. COMPAZINE [Concomitant]
     Active Substance: PROCHLORPERAZINE MALEATE
  10. GLUCOSAMINE [Concomitant]
     Active Substance: GLUCOSAMINE
  11. LUPRON [Concomitant]
     Active Substance: LEUPROLIDE ACETATE
  12. TYLENOL [Concomitant]
     Active Substance: ACETAMINOPHEN
  13. KCL [Concomitant]
     Active Substance: POTASSIUM CHLORIDE
  14. AMILODIPINE [Concomitant]
  15. LEVOTHYROXIN [Concomitant]
     Active Substance: LEVOTHYROXINE
  16. MSM [Concomitant]
     Active Substance: DIMETHYL SULFONE
  17. BEVACIZUMAB [Suspect]
     Active Substance: BEVACIZUMAB
     Indication: PROSTATE CANCER
     Dosage: 1118MG IVPB
     Route: 042
     Dates: start: 20140729
  18. RAD001 [Suspect]
     Active Substance: EVEROLIMUS
     Route: 048
     Dates: start: 20141217
  19. IBUPROFEN. [Concomitant]
     Active Substance: IBUPROFEN

REACTIONS (2)
  - Drug dose omission [None]
  - Blood pressure increased [None]

NARRATIVE: CASE EVENT DATE: 20141217
